FAERS Safety Report 4429703-X (Version None)
Quarter: 2004Q3

REPORT INFORMATION
  Report Type: 
  Country: None (occurrence: None)
  Receive Date: 20040816
  Receipt Date: 20040729
  Transmission Date: 20050211
  Serious: Yes (Hospitalization)
  Sender: FDA-Public Use
  Company Number: DSA_24785_2004

PATIENT
  Age: 82 Year
  Sex: Male

DRUGS (15)
  1. DILTIAZEM HYDROCHLORIDE [Suspect]
     Dosage: 200 MG Q DAY PO
     Route: 048
     Dates: end: 20040603
  2. CALCIPARINE [Suspect]
     Indication: ATRIAL FIBRILLATION
     Dosage: 0.3 ML TID SC
     Route: 058
     Dates: start: 20040512, end: 20040519
  3. CALCIPARINE [Suspect]
     Indication: ATRIAL FIBRILLATION
     Dosage: 0.3 ML TID SC
     Route: 058
     Dates: start: 20040524, end: 20040603
  4. ATROVENT [Suspect]
     Dosage: 20 MCG TID IH
     Route: 055
     Dates: start: 20040501, end: 20040603
  5. PERFALGAN [Suspect]
     Dosage: 10 MG/ML Q DAY IV
     Route: 042
     Dates: start: 20040501, end: 20040603
  6. LASIX [Suspect]
     Dosage: 20 MG Q DAY PO
     Route: 048
     Dates: end: 20040603
  7. OFLOCET [Suspect]
     Dosage: 200 MG Q DAY IV
     Route: 042
     Dates: start: 20040501, end: 20040603
  8. CORDARONE [Concomitant]
  9. FENOFIBRATE [Concomitant]
  10. ANAFRANIL [Concomitant]
  11. OMEPRAZOLE [Concomitant]
  12. IMOVANE [Concomitant]
  13. ZAMUDOL [Concomitant]
  14. BRICANTYL [Concomitant]
  15. PREVISCAN [Concomitant]

REACTIONS (9)
  - ATRIAL FIBRILLATION [None]
  - BACK PAIN [None]
  - DEHYDRATION [None]
  - INFLAMMATION [None]
  - INTERNATIONAL NORMALISED RATIO INCREASED [None]
  - LYMPHADENOPATHY [None]
  - PYREXIA [None]
  - RENAL FAILURE [None]
  - THROMBOCYTOPENIA [None]
